FAERS Safety Report 11228216 (Version 1)
Quarter: 2015Q2

REPORT INFORMATION
  Report Type: Report from Study
  Country: US (occurrence: US)
  Receive Date: 20150630
  Receipt Date: 20150630
  Transmission Date: 20150821
  Serious: Yes (Other)
  Sender: FDA-Public Use
  Company Number: US-BAXALTA-2015BAX033543

PATIENT
  Sex: Male

DRUGS (1)
  1. OCTOCOG ALFA; BAXJECT II [Suspect]
     Active Substance: ANTIHEMOPHILIC FACTOR, HUMAN RECOMBINANT
     Indication: HAEMORRHAGE PROPHYLAXIS
     Dosage: PROPHYLAXIS
     Route: 065

REACTIONS (1)
  - Haemorrhage [Unknown]
